FAERS Safety Report 15804910 (Version 2)
Quarter: 2019Q1

REPORT INFORMATION
  Report Type: Report from Study
  Country: None (occurrence: TW)
  Receive Date: 20190110
  Receipt Date: 20190225
  Transmission Date: 20190417
  Serious: Yes (Hospitalization)
  Sender: FDA-Public Use
  Company Number: TW-ABBVIE-19K-153-2618150-00

PATIENT
  Age: 57 Year
  Sex: Female
  Weight: 56.6 kg

DRUGS (2)
  1. HUMIRA [Suspect]
     Active Substance: ADALIMUMAB
     Indication: RHEUMATOID ARTHRITIS
     Route: 058
     Dates: start: 20180104, end: 20181213
  2. HUMIRA [Suspect]
     Active Substance: ADALIMUMAB
     Indication: RHEUMATOID ARTHRITIS
     Route: 058
     Dates: start: 20110210, end: 20180103

REACTIONS (4)
  - Secondary immunodeficiency [Not Recovered/Not Resolved]
  - T-cell lymphoma [Not Recovered/Not Resolved]
  - Hodgkin^s disease [Not Recovered/Not Resolved]
  - Eosinophil count decreased [Not Recovered/Not Resolved]

NARRATIVE: CASE EVENT DATE: 20181106
